FAERS Safety Report 7360850-9 (Version None)
Quarter: 2011Q1

REPORT INFORMATION
  Report Type: 
  Country: None (occurrence: None)
  Receive Date: 20110318
  Receipt Date: 20110310
  Transmission Date: 20110831
  Serious: Yes (Hospitalization, Other)
  Sender: FDA-Public Use
  Company Number: ES-ACTELION-A-CH2010-34112

PATIENT
  Sex: Female
  Weight: 2.5 kg

DRUGS (1)
  1. TRACLEER [Suspect]
     Indication: DRUG EXPOSURE DURING PREGNANCY
     Dosage: 62.5 MG, BID
     Route: 064
     Dates: start: 20090514, end: 20090609

REACTIONS (3)
  - DRUG EXPOSURE DURING PREGNANCY [None]
  - BRONCHIOLITIS [None]
  - PREMATURE BABY [None]
